FAERS Safety Report 6633544-2 (Version None)
Quarter: 2010Q1

REPORT INFORMATION
  Report Type: 
  Country: None (occurrence: None)
  Receive Date: 20100312
  Receipt Date: 20090805
  Transmission Date: 20100710
  Serious: No
  Sender: FDA-Public Use
  Company Number: US-ABBOTT-09P-163-0589933-00

PATIENT
  Sex: Female
  Weight: 78.088 kg

DRUGS (5)
  1. ERYTHROMYCIN BASE [Suspect]
     Indication: TOOTH INFECTION
     Dosage: 1/2 A TABLET
     Route: 048
     Dates: start: 20090501
  2. ERYTHROMYCIN BASE [Suspect]
     Indication: EAR INFECTION
  3. ERYTHROMYCIN BASE [Suspect]
     Indication: INFECTION
  4. NORVASC [Concomitant]
     Indication: HYPERTENSION
  5. THYROID TAB [Concomitant]
     Indication: DRUG USE FOR UNKNOWN INDICATION

REACTIONS (3)
  - DRUG ADMINISTRATION ERROR [None]
  - HYPOACUSIS [None]
  - VISUAL IMPAIRMENT [None]
